FAERS Safety Report 4818911-1 (Version None)
Quarter: 2005Q4

REPORT INFORMATION
  Report Type: 
  Country: None (occurrence: None)
  Receive Date: 20051101
  Receipt Date: 20051020
  Transmission Date: 20060501
  Serious: Yes (Hospitalization, Other)
  Sender: FDA-Public Use
  Company Number: 2003030892

PATIENT
  Age: 35 Year
  Sex: Male
  Weight: 73 kg

DRUGS (5)
  1. ZIPRASIDONE (CAPS) (ZIPRASIDONE) [Suspect]
     Indication: SCHIZOPHRENIA
     Dosage: 160 MG (2 IN 1 D), ORAL
     Route: 048
     Dates: start: 20030226, end: 20030720
  2. ZUCLOPENTHIXOL (ZUCLOPENTHIXOL) [Concomitant]
  3. CLONAZEPAM [Concomitant]
  4. ALPRAZOLAM [Concomitant]
  5. SERTRALINE HCL [Concomitant]

REACTIONS (5)
  - INTENTIONAL OVERDOSE [None]
  - MIOSIS [None]
  - MYDRIASIS [None]
  - RESTLESSNESS [None]
  - SUICIDE ATTEMPT [None]
